FAERS Safety Report 8062315-8 (Version None)
Quarter: 2012Q1

REPORT INFORMATION
  Report Type: 
  Country: None (occurrence: None)
  Receive Date: 20120123
  Receipt Date: 20120111
  Transmission Date: 20120608
  Serious: Yes (Hospitalization, Other)
  Sender: FDA-Public Use
  Company Number: US-BAYER-2011-059230

PATIENT
  Age: 21 Year
  Sex: Female
  Weight: 54.422 kg

DRUGS (18)
  1. PREDNISONE TAB [Concomitant]
     Indication: INFLAMMATORY BOWEL DISEASE
     Dosage: 5 MG, UNK
     Dates: start: 20060901, end: 20090709
  2. TORADOL [Concomitant]
     Indication: PROCTOCOLECTOMY
     Dosage: 15 MG, PRN
     Dates: start: 20090709, end: 20090713
  3. ACETAMINOPHEN [Concomitant]
     Indication: HEADACHE
     Dosage: 600 MG, PRN
     Dates: start: 20090716
  4. YAZ [Suspect]
     Dosage: UNK
     Dates: start: 20070924, end: 20090716
  5. AZITHROMYCIN [Concomitant]
     Dosage: 250 MG, UNK
     Dates: start: 20090501
  6. METRONIDAZOLE [Concomitant]
     Indication: PROCTOCOLECTOMY
     Dosage: 500 MG, BID
  7. POTASSIUM CHLORIDE [Concomitant]
     Indication: PROCTOCOLECTOMY
     Dosage: 40 MG, QD
     Dates: start: 20090709, end: 20090713
  8. LANSOPRAZOLE [Concomitant]
     Indication: PROCTOCOLECTOMY
     Dosage: 30 MG, QD
     Dates: start: 20090709, end: 20090713
  9. MULTI-VITAMINS [Concomitant]
     Indication: MEDICAL DIET
     Dosage: UNK
     Dates: start: 20090301, end: 20090709
  10. HYDROMORPHONE HCL [Concomitant]
     Indication: PROCTOCOLECTOMY
     Dosage: 2 MG, UNK
     Dates: start: 20090713
  11. VITAMIN B-12 [Concomitant]
     Indication: MEDICAL DIET
     Dosage: UNK
     Dates: start: 20090301, end: 20090709
  12. CEFAZOLIN [Concomitant]
     Indication: PROCTOCOLECTOMY
     Dosage: 1 G, TID
     Dates: start: 20090709, end: 20090713
  13. CALCIUM [Concomitant]
     Indication: MEDICAL DIET
     Dosage: UNK
     Dates: start: 20090301, end: 20090709
  14. COLACE [Concomitant]
     Indication: PROCTOCOLECTOMY
     Dosage: 100 MG, BID
     Dates: start: 20090709, end: 20090713
  15. RANITIDINE [Concomitant]
     Indication: PROCTOCOLECTOMY
     Dosage: 50 MG, UNK
     Route: 042
  16. LIALDA [Concomitant]
     Indication: INFLAMMATORY BOWEL DISEASE
     Dosage: UNK UNK, QID
     Dates: start: 20080401, end: 20090401
  17. HEPARIN [Concomitant]
     Indication: THROMBOSIS PROPHYLAXIS
     Dosage: 5000 U, TID
     Dates: start: 20090709, end: 20090713
  18. ALLEGRA [Concomitant]
     Indication: MULTIPLE ALLERGIES
     Dosage: UNK
     Dates: start: 20080601, end: 20090901

REACTIONS (10)
  - INTRACRANIAL VENOUS SINUS THROMBOSIS [None]
  - NECK PAIN [None]
  - VOMITING [None]
  - JUGULAR VEIN THROMBOSIS [None]
  - HEADACHE [None]
  - NAUSEA [None]
  - HAEMORRHAGE [None]
  - ANXIETY [None]
  - EMOTIONAL DISTRESS [None]
  - GENERAL PHYSICAL HEALTH DETERIORATION [None]
